FAERS Safety Report 8071047-1 (Version None)
Quarter: 2012Q1

REPORT INFORMATION
  Report Type: 
  Country: None (occurrence: None)
  Receive Date: 20120125
  Receipt Date: 20120119
  Transmission Date: 20120608
  Serious: No
  Sender: FDA-Public Use
  Company Number: US-PFIZER INC-2012016029

PATIENT
  Sex: Female
  Weight: 63.492 kg

DRUGS (2)
  1. EFFEXOR XR [Suspect]
     Indication: DEPRESSION
     Dosage: 300 MG, 1X/DAY
     Route: 048
  2. SEROQUEL [Concomitant]
     Dosage: UNK

REACTIONS (1)
  - ILLOGICAL THINKING [None]
